FAERS Safety Report 9684122 (Version 1)
Quarter: 2013Q4

REPORT INFORMATION
  Report Type: Spontaneous
  Country: US (occurrence: None)
  Receive Date: 20131111
  Receipt Date: 20131111
  Transmission Date: 20140711
  Serious: Yes (Disabling)
  Sender: FDA-Public Use
  Company Number: None

PATIENT
  Age: 39 Year
  Sex: Female
  Weight: 75.3 kg

DRUGS (1)
  1. LEVOFLOXACIN [Suspect]
     Indication: COUGH
     Dosage: LEVOFLOXACIN, ONCE DAILY, TAKEN BY MOUTH
     Route: 048
     Dates: start: 20131105, end: 20131109

REACTIONS (2)
  - Hypoaesthesia [None]
  - Paraesthesia [None]
